FAERS Safety Report 23043425 (Version 2)
Quarter: 2023Q4

REPORT INFORMATION
  Report Type: Report from Study
  Country: US (occurrence: US)
  Receive Date: 20231009
  Receipt Date: 20231020
  Transmission Date: 20240109
  Serious: Yes (Other)
  Sender: FDA-Public Use
  Company Number: US-BEH-2023164056

PATIENT
  Age: 83 Year
  Sex: Female
  Weight: 100.68 kg

DRUGS (2)
  1. HIZENTRA [Suspect]
     Active Substance: HUMAN IMMUNOGLOBULIN G
     Indication: Product used for unknown indication
     Dosage: UNK
     Route: 065
  2. HIZENTRA [Suspect]
     Active Substance: HUMAN IMMUNOGLOBULIN G
     Dosage: UNK
     Route: 065
     Dates: start: 202310

REACTIONS (5)
  - Atrial fibrillation [Unknown]
  - Diabetes mellitus [Unknown]
  - No adverse event [Unknown]
  - Product use issue [Unknown]
  - Product dose omission issue [Unknown]
